FAERS Safety Report 4892676-X (Version None)
Quarter: 2006Q1

REPORT INFORMATION
  Report Type: 
  Country: None (occurrence: None)
  Receive Date: 20060125
  Receipt Date: 20060125
  Transmission Date: 20060701
  Serious: No
  Sender: FDA-Public Use
  Company Number: None

PATIENT
  Age: 63 Year
  Sex: Male
  Weight: 70 kg

DRUGS (10)
  1. FENTANYL [Suspect]
     Indication: PAIN
     Dosage: 100 MCG PATCH Q 72 HOURS
     Dates: start: 20051009
  2. HYDROMORPHONE HCL [Concomitant]
  3. HALDOL [Concomitant]
  4. GABAPENTIN [Concomitant]
  5. LEVOFLOXACIN [Concomitant]
  6. METOPROLOL [Concomitant]
  7. SSI [Concomitant]
  8. DOCUSATE [Concomitant]
  9. SENNA [Concomitant]
  10. HEPARIN [Concomitant]

REACTIONS (4)
  - DELUSION [None]
  - FLIGHT OF IDEAS [None]
  - PARANOIA [None]
  - PSYCHOTIC DISORDER [None]
